FAERS Safety Report 8268856-2 (Version None)
Quarter: 2012Q2

REPORT INFORMATION
  Report Type: 
  Country: None (occurrence: None)
  Receive Date: 20120409
  Receipt Date: 20120409
  Transmission Date: 20120825
  Serious: No
  Sender: FDA-Public Use
  Company Number: None

PATIENT
  Age: 22 Year
  Sex: Female
  Weight: 58.967 kg

DRUGS (2)
  1. ALKA-SELTZER PLUS COLD + COUGH [Suspect]
     Indication: NASOPHARYNGITIS
     Dosage: 2 CAPSULES
     Route: 048
  2. ALKA-SELTZER PLUS COLD + COUGH [Concomitant]

REACTIONS (8)
  - HOT FLUSH [None]
  - ANXIETY [None]
  - HEART RATE INCREASED [None]
  - PARANOIA [None]
  - TREMOR [None]
  - DIARRHOEA [None]
  - MYDRIASIS [None]
  - FEAR [None]
